FAERS Safety Report 7403475-9 (Version None)
Quarter: 2011Q2

REPORT INFORMATION
  Report Type: 
  Country: None (occurrence: None)
  Receive Date: 20110408
  Receipt Date: 20110331
  Transmission Date: 20111010
  Serious: Yes (Death)
  Sender: FDA-Public Use
  Company Number: B0711513A

PATIENT
  Age: 64 Year
  Sex: Male

DRUGS (3)
  1. ARIXTRA [Suspect]
     Indication: DEEP VEIN THROMBOSIS
     Dosage: 5MG PER DAY
     Route: 030
     Dates: start: 20101201, end: 20101201
  2. TELMISARTAN [Concomitant]
     Indication: HYPERTENSION
     Route: 065
  3. TIOTROPIUM [Concomitant]
     Indication: CHRONIC OBSTRUCTIVE PULMONARY DISEASE
     Route: 065

REACTIONS (2)
  - RETROPERITONEAL HAEMATOMA [None]
  - BACK PAIN [None]
